FAERS Safety Report 7878577-3 (Version None)
Quarter: 2011Q4

REPORT INFORMATION
  Report Type: 
  Country: None (occurrence: None)
  Receive Date: 20111028
  Receipt Date: 20111013
  Transmission Date: 20120403
  Serious: Yes (Death, Other)
  Sender: FDA-Public Use
  Company Number: 2011MA014167

PATIENT
  Age: 63 Year
  Sex: Male
  Weight: 61 kg

DRUGS (4)
  1. PACLITAXEL [Suspect]
     Indication: GASTRIC CANCER
     Dosage: 60 MG/M**2/ICAV
     Route: 017
     Dates: start: 20040329
  2. S-1 (NO PREF. NAME) [Suspect]
     Indication: GASTRIC CANCER
     Dosage: 120 MG;QD
     Dates: start: 20031120
  3. CISPLATIN [Suspect]
     Indication: GASTRIC CANCER
     Dosage: 60 MG/M**2;QD
     Dates: start: 20031120
  4. IRINOTECAN HYDROCHLORIDE [Suspect]
     Indication: GASTRIC CANCER
     Dosage: 50 MG/M**2;TIW
     Dates: start: 20050602

REACTIONS (8)
  - ASCITES [None]
  - TOXICITY TO VARIOUS AGENTS [None]
  - ANAEMIA [None]
  - NAUSEA [None]
  - ALOPECIA [None]
  - JAUNDICE CHOLESTATIC [None]
  - LEUKOPENIA [None]
  - LYMPHADENOPATHY [None]
